FAERS Safety Report 21731064 (Version 6)
Quarter: 2024Q4

REPORT INFORMATION
  Report Type: Report from Study
  Country: US (occurrence: US)
  Receive Date: 20221215
  Receipt Date: 20241015
  Transmission Date: 20250115
  Serious: Yes (Other)
  Sender: NOVARTIS
  Company Number: US-002147023-NVSC2022US290352

PATIENT
  Age: 85 Year
  Sex: Female
  Weight: 54.4 kg

DRUGS (20)
  1. KISQALI [Suspect]
     Active Substance: RIBOCICLIB
     Indication: Breast cancer metastatic
     Dosage: 600 MG (21 D ON AND 7 D OFF)
     Route: 048
     Dates: start: 20221130, end: 20230106
  2. KISQALI [Suspect]
     Active Substance: RIBOCICLIB
     Dosage: 400 MG, QD (21 D ON AND 7 D OFF)
     Route: 048
     Dates: start: 20230209
  3. KISQALI [Suspect]
     Active Substance: RIBOCICLIB
     Dosage: 600 MG, DAY 1 TO 21 OUT OF 28 DAYS CYCLE
     Route: 048
  4. TYLENOL [Concomitant]
     Active Substance: ACETAMINOPHEN
     Indication: Pain
     Dosage: 1 DOSAGE FORM (650 MG TOTAL) BY MOUTH, Q8H AS NEEDED (CR TABLET)
     Route: 048
     Dates: start: 20220822
  5. ASPIRIN [Concomitant]
     Active Substance: ASPIRIN
     Indication: Product used for unknown indication
     Dosage: 1 DOSAGE FORM (81 MG, TOTAL), QD (ENTERIC COATED TABLET)
     Route: 048
     Dates: start: 20190320
  6. LIPITOR [Concomitant]
     Active Substance: ATORVASTATIN CALCIUM
     Indication: Hyperlipidaemia
     Dosage: 1 DOSAGE FORM (20 MG, TOTAL BY MOUTH), QD
     Route: 048
  7. PLAVIX [Concomitant]
     Active Substance: CLOPIDOGREL BISULFATE
     Indication: Cerebrovascular accident
     Dosage: 1 DOSAGE FORM (75 MG, TOTAL BY MOUTH), QD
     Route: 048
     Dates: start: 20190320
  8. ATIVAN [Concomitant]
     Active Substance: LORAZEPAM
     Indication: Anxiety
     Dosage: 1 DOSAGE FORM (0.5 MG TOTAL BY MOUTH), BID AS NEEDED (STARTED ON 25 JUN))
     Route: 048
  9. COZAAR [Concomitant]
     Active Substance: LOSARTAN POTASSIUM
     Indication: Hypertension
     Dosage: 0.5 DOSAGE FORM (12.5 MG TOTAL BY MOUTH), QD
     Route: 048
     Dates: start: 20230206
  10. REMERON [Concomitant]
     Active Substance: MIRTAZAPINE
     Indication: Depression
     Dosage: 1 DOSAGE FORM (7.5 MG TOTAL BY MOUTH) EVERY NIGHT AT BEDTIME
     Route: 048
     Dates: start: 2022
  11. VITAMINS [Concomitant]
     Active Substance: VITAMINS
     Indication: Product used for unknown indication
     Dosage: 1 DOSAGE FORM, QD BY MOUTH
     Route: 048
     Dates: start: 20220805
  12. GLYCOLAX [Concomitant]
     Active Substance: POLYETHYLENE GLYCOL 3350
     Indication: Product used for unknown indication
     Dosage: 17 G, QD AS NEEDED (17G/SCOOP POWDER)
     Route: 048
     Dates: start: 20220622
  13. LEXAPRO [Concomitant]
     Active Substance: ESCITALOPRAM OXALATE
     Indication: Depression
     Dosage: 1 DOSAGE FORM (20 MG TOTAL BY MOUTH), QD
     Route: 048
     Dates: start: 20191122
  14. VITAMIN D3 [Concomitant]
     Active Substance: CHOLECALCIFEROL
     Indication: Product used for unknown indication
     Dosage: 1 DOSAGE FORM (10 MCG TOTAL BY MOUTH), QD (400 UNIT)
     Route: 048
  15. ULTRAM [Concomitant]
     Active Substance: TRAMADOL HYDROCHLORIDE
     Indication: Pain
     Dosage: 1 DOSAGE FORM, EVERY 6 HOURS AS NEEDED
     Route: 048
  16. IRON [Concomitant]
     Active Substance: IRON
     Indication: Anaemia
     Dosage: UNK, QD
     Route: 065
     Dates: end: 20220805
  17. DESYREL [Concomitant]
     Active Substance: TRAZODONE HYDROCHLORIDE
     Indication: Sleep disorder
     Dosage: 1 DOSAGE FORM, AS NEEDED
     Route: 048
  18. PERI-COLACE [Concomitant]
     Active Substance: CASANTHRANOL\DOCUSATE SODIUM
     Indication: Product used for unknown indication
     Dosage: 1 DOSAGE FORM, QD
     Route: 048
  19. VITAMIN B12 [Concomitant]
     Active Substance: CYANOCOBALAMIN
     Indication: Product used for unknown indication
     Dosage: 1000 UG, QMO
     Route: 030
  20. FEMARA [Concomitant]
     Active Substance: LETROZOLE
     Indication: Product used for unknown indication
     Dosage: 1 DOSAGE FORM, QD
     Route: 048

REACTIONS (4)
  - Neutropenia [Recovering/Resolving]
  - Fatigue [Recovering/Resolving]
  - Anaemia [Recovering/Resolving]
  - Underdose [Unknown]

NARRATIVE: CASE EVENT DATE: 20221214
